FAERS Safety Report 6656058-2 (Version None)
Quarter: 2010Q1

REPORT INFORMATION
  Report Type: 
  Country: None (occurrence: None)
  Receive Date: 20100329
  Receipt Date: 20100322
  Transmission Date: 20100710
  Serious: Yes (Hospitalization, Other)
  Sender: FDA-Public Use
  Company Number: A0843914A

PATIENT
  Age: 31 Year
  Sex: Male
  Weight: 104.1 kg

DRUGS (6)
  1. ARRANON [Suspect]
     Dosage: 1500MGM2 ALTERNATE DAYS
     Route: 042
     Dates: start: 20100201, end: 20100204
  2. ALLOPURINOL [Concomitant]
     Dosage: 300G PER DAY
     Route: 048
  3. DECADRON [Concomitant]
     Dosage: 8MG PER DAY
     Route: 048
  4. OMEPRAZOLE [Concomitant]
     Dosage: 40G PER DAY
     Route: 048
  5. TYLENOL-500 [Concomitant]
     Dosage: 650G AS REQUIRED
     Route: 065
  6. ONDANSETRON [Concomitant]
     Dosage: 16G PER DAY
     Route: 065

REACTIONS (4)
  - BLOOD CREATINE PHOSPHOKINASE INCREASED [None]
  - MALAISE [None]
  - PAIN IN EXTREMITY [None]
  - RHABDOMYOLYSIS [None]
